FAERS Safety Report 9827545 (Version 1)
Quarter: 2014Q1

REPORT INFORMATION
  Report Type: Spontaneous
  Country: US (occurrence: US)
  Receive Date: 20140117
  Receipt Date: 20140117
  Transmission Date: 20141002
  Serious: No
  Sender: FDA-Public Use
  Company Number: US-BIOGENIDEC-2014BI001662

PATIENT
  Sex: Female
  Weight: 65 kg

DRUGS (24)
  1. TECFIDERA [Suspect]
     Indication: PRODUCT USED FOR UNKNOWN INDICATION
     Route: 048
  2. SINGULAIR [Concomitant]
  3. XANAX [Concomitant]
  4. TRAZODONE [Concomitant]
  5. CLONAZEPAM [Concomitant]
  6. FLOUXETINE [Concomitant]
  7. OMEPRAZOLE [Concomitant]
  8. LOSARTAN/HCT [Concomitant]
  9. IMITREX [Concomitant]
  10. LEVOTHYROXIN [Concomitant]
  11. SYMBICORT AER [Concomitant]
  12. PRILOSEC [Concomitant]
  13. ALPRAZOLAM [Concomitant]
  14. EPIPEN [Concomitant]
  15. OXYCODONE [Concomitant]
  16. ATORVASTATIN [Concomitant]
  17. VITAMIN D [Concomitant]
  18. PROVIGIL [Concomitant]
  19. PROAIR HFA [Concomitant]
  20. TUSSIN [Concomitant]
  21. CALCIUM [Concomitant]
  22. VITAMIN C [Concomitant]
  23. ASPIRIN ADULT [Concomitant]
  24. CARISOPRODOL [Concomitant]

REACTIONS (5)
  - Abdominal distension [Unknown]
  - Balance disorder [Unknown]
  - Dizziness [Unknown]
  - Asthenia [Unknown]
  - Diarrhoea [Unknown]
